FAERS Safety Report 6645876-2 (Version None)
Quarter: 2010Q1

REPORT INFORMATION
  Report Type: 
  Country: None (occurrence: None)
  Receive Date: 20100323
  Receipt Date: 20100310
  Transmission Date: 20100710
  Serious: Yes (Hospitalization, Other)
  Sender: FDA-Public Use
  Company Number: PHHY2010NL14605

PATIENT
  Sex: Female

DRUGS (11)
  1. ZOMETA [Suspect]
     Dosage: 4 MG/ 5 ML, 100 ML 0.9% NACL
     Dates: start: 20090520
  2. ZOMETA [Suspect]
     Dosage: UNK
     Dates: start: 20090630
  3. ZOMETA [Suspect]
     Dosage: UNK
     Dates: start: 20090813
  4. ZOMETA [Suspect]
     Dosage: UNK
     Dates: start: 20090922
  5. ZOMETA [Suspect]
     Dosage: UNK
     Dates: start: 20091104
  6. ZOMETA [Suspect]
     Dosage: UNK
     Dates: start: 20091216
  7. ZOMETA [Suspect]
     Dosage: UNK
     Dates: start: 20100127
  8. ZOMETA [Suspect]
     Dosage: UNK
     Dates: start: 20100310
  9. BETAHISTINE [Concomitant]
     Dosage: 3 DD 16 MG
  10. OMEPRAZOLE [Concomitant]
     Dosage: 1 DD 40 MG
  11. TEMAZEPAM [Concomitant]

REACTIONS (3)
  - DIZZINESS [None]
  - HIP FRACTURE [None]
  - SURGERY [None]
